FAERS Safety Report 23336484 (Version 1)
Quarter: 2023Q4

REPORT INFORMATION
  Report Type: Report from Study
  Country: US (occurrence: US)
  Receive Date: 20231226
  Receipt Date: 20231226
  Transmission Date: 20240109
  Serious: Yes (Hospitalization)
  Sender: FDA-Public Use
  Company Number: US-JNJFOC-20231260742

PATIENT
  Age: 73 Year
  Sex: Female

DRUGS (1)
  1. MACITENTAN [Suspect]
     Active Substance: MACITENTAN
     Indication: Pulmonary arterial hypertension
     Route: 048
     Dates: start: 20231204, end: 20231216

REACTIONS (5)
  - Chest pain [Recovered/Resolved]
  - Pain in extremity [Recovered/Resolved]
  - Dyspnoea [Recovering/Resolving]
  - Oedema peripheral [Recovering/Resolving]
  - Lung infiltration [Recovering/Resolving]

NARRATIVE: CASE EVENT DATE: 20231215
